FAERS Safety Report 7227477-0 (Version None)
Quarter: 2011Q1

REPORT INFORMATION
  Report Type: 
  Country: None (occurrence: None)
  Receive Date: 20110114
  Receipt Date: 20101231
  Transmission Date: 20110831
  Serious: Yes (Hospitalization)
  Sender: FDA-Public Use
  Company Number: TR-NOVEN-10TR001543

PATIENT
  Age: 43 Year
  Sex: Female

DRUGS (7)
  1. BIPERIDEN HYDROCHLORIDE TAB [Suspect]
     Indication: PRODUCT USED FOR UNKNOWN INDICATION
     Dosage: 2 MG, QD
     Route: 065
  2. RISPERIDONE [Suspect]
     Indication: PRODUCT USED FOR UNKNOWN INDICATION
     Dosage: 4 MG, QD
     Route: 065
  3. ALPRAZOLAM [Suspect]
     Indication: PRODUCT USED FOR UNKNOWN INDICATION
     Dosage: 1.5 MG, QD
     Route: 065
  4. PAROXETINE HCL [Suspect]
     Indication: PRODUCT USED FOR UNKNOWN INDICATION
     Dosage: TITRATED UP TO 40 MG DAILY
     Route: 065
  5. ALPRAZOLAM [Suspect]
     Dosage: 1 MG, QD
     Route: 065
  6. UNKNOWN [Concomitant]
  7. RISPERIDONE [Suspect]
     Dosage: 3 MG, QD
     Route: 065

REACTIONS (7)
  - SUICIDAL IDEATION [None]
  - PSYCHOMOTOR RETARDATION [None]
  - DRUG INEFFECTIVE [None]
  - DEPRESSED MOOD [None]
  - OBSESSIVE-COMPULSIVE DISORDER [None]
  - IMPAIRED SELF-CARE [None]
  - OBSESSIVE THOUGHTS [None]
